FAERS Safety Report 10054998 (Version 1)
Quarter: 2014Q2

REPORT INFORMATION
  Report Type: Report from Study
  Country: US (occurrence: US)
  Receive Date: 20140402
  Receipt Date: 20140402
  Transmission Date: 20141212
  Serious: Yes (Other)
  Sender: FDA-Public Use
  Company Number: PHEH2014US006177

PATIENT
  Sex: Female

DRUGS (8)
  1. GILENYA [Suspect]
     Indication: MULTIPLE SCLEROSIS
     Dosage: UNK
     Route: 048
     Dates: start: 201302
  2. ZANAFLEX [Concomitant]
  3. ADDERALL [Concomitant]
  4. FLOMAX [Concomitant]
  5. LYRICA [Concomitant]
  6. NUCYNTA [Concomitant]
  7. SALAGEN [Concomitant]
     Dosage: 5 MG, UNK
  8. TRILEPTAL [Concomitant]

REACTIONS (5)
  - Fall [Unknown]
  - Ankle fracture [Unknown]
  - Muscular weakness [Unknown]
  - Depression [Unknown]
  - Depressed mood [Unknown]
